FAERS Safety Report 13673080 (Version 1)
Quarter: 2017Q2

REPORT INFORMATION
  Report Type: Spontaneous
  Country: CA (occurrence: CA)
  Receive Date: 20170621
  Receipt Date: 20170621
  Transmission Date: 20170830
  Serious: Yes (Other)
  Sender: FDA-Public Use
  Company Number: CA-TEVA-779965ACC

PATIENT
  Age: 37 Year
  Sex: Male
  Weight: 65.83 kg

DRUGS (4)
  1. SEROQUEL [Concomitant]
     Active Substance: QUETIAPINE FUMARATE
  2. REMERON [Concomitant]
     Active Substance: MIRTAZAPINE
  3. BUPRENORPHINE/NALOXONE [Suspect]
     Active Substance: BUPRENORPHINE\NALOXONE
     Indication: DRUG WITHDRAWAL MAINTENANCE THERAPY
     Dosage: 8 MILLIGRAM DAILY;
     Route: 060
  4. BIPHENTIN [Concomitant]
     Active Substance: METHYLPHENIDATE

REACTIONS (4)
  - Product taste abnormal [Recovered/Resolved]
  - Substance use [Recovered/Resolved]
  - Withdrawal syndrome [Recovered/Resolved]
  - Nausea [Recovered/Resolved]
